FAERS Safety Report 5269254-6 (Version None)
Quarter: 2007Q1

REPORT INFORMATION
  Report Type: 
  Country: None (occurrence: None)
  Receive Date: 20070319
  Receipt Date: 20070309
  Transmission Date: 20070707
  Serious: Yes (Hospitalization, Other)
  Sender: FDA-Public Use
  Company Number: US-PFIZER INC-2007006473

PATIENT
  Sex: Male
  Weight: 77.1 kg

DRUGS (5)
  1. GEODON [Suspect]
     Indication: OBSESSIVE-COMPULSIVE DISORDER
     Dates: start: 20060104, end: 20061201
  2. GEODON [Suspect]
     Indication: MAJOR DEPRESSION
  3. EFFEXOR [Suspect]
     Indication: MAJOR DEPRESSION
     Route: 048
  4. WELLBUTRIN XL [Suspect]
     Route: 048
  5. ALL OTHER THERAPEUTIC PRODUCTS [Concomitant]

REACTIONS (4)
  - COMPARTMENT SYNDROME [None]
  - DELIRIUM [None]
  - INJURY [None]
  - SUICIDAL IDEATION [None]
